FAERS Safety Report 14715445 (Version 1)
Quarter: 2018Q2

REPORT INFORMATION
  Report Type: Spontaneous
  Country: IE (occurrence: IE)
  Receive Date: 20180404
  Receipt Date: 20180404
  Transmission Date: 20180711
  Serious: Yes (Hospitalization)
  Sender: FDA-Public Use
  Company Number: IE-BAXTER-2018BAX009645

PATIENT
  Age: 70 Year
  Sex: Female

DRUGS (30)
  1. SODIUM GLYCEROPHOSPHATE [Suspect]
     Active Substance: SODIUM GLYCEROPHOSPHATE
     Indication: PARENTERAL NUTRITION
     Dosage: TPN WITH CLINOLEIC, BAXTER UNLICENSED SPECIALS
     Route: 065
  2. POTASSIUM CHLORIDE. [Suspect]
     Active Substance: POTASSIUM CHLORIDE
     Dosage: TPN WITHOUT CLINOLEIC, BAXTER UNLICENSED SPECIALS
     Route: 065
  3. MAGNESIUM SULPHATE [Suspect]
     Active Substance: MAGNESIUM SULFATE
     Dosage: TPN WITHOUT CLINOLEIC, BAXTER UNLICENSED SPECIALS
     Route: 065
  4. CALCIUM CHLORIDE. [Suspect]
     Active Substance: CALCIUM CHLORIDE
     Indication: PARENTERAL NUTRITION
     Dosage: 1 MMOL/ML, TPN WITH CLINOLEIC, BAXTER UNLICENSED SPECIALS
     Route: 065
  5. CALCIUM CHLORIDE. [Suspect]
     Active Substance: CALCIUM CHLORIDE
     Dosage: 1 MMOL/ML, TPN WITHOUT CLINOLEIC, BAXTER UNLICENSED SPECIALS
     Route: 065
  6. GLUCOSE INTRAVENOUS INFUSION BP 50% W/V [Suspect]
     Active Substance: DEXTROSE
     Indication: PARENTERAL NUTRITION
     Dosage: TPN WITH CLINOLEIC
     Route: 065
  7. SODIUM GLYCEROPHOSPHATE [Suspect]
     Active Substance: SODIUM GLYCEROPHOSPHATE
     Dosage: TPN WITHOUT CLINOLEIC, BAXTER UNLICENSED SPECIALS
     Route: 065
  8. ZINC SULFATE [Suspect]
     Active Substance: ZINC SULFATE\ZINC SULFATE ANHYDROUS
     Indication: PARENTERAL NUTRITION
     Dosage: TPN WITH CLINOLEIC
     Route: 065
  9. GLUCOSE INTRAVENOUS INFUSION BP 50% W/V [Suspect]
     Active Substance: DEXTROSE
     Dosage: TPN WITHOUT CLINOLEIC
     Route: 065
  10. POTASSIUM CHLORIDE. [Suspect]
     Active Substance: POTASSIUM CHLORIDE
     Indication: PARENTERAL NUTRITION
     Dosage: TPN WITH CLINOLEIC, BAXTER UNLICENSED SPECIALS
     Route: 065
  11. WATER FOR TPN FORMULATIONS [Suspect]
     Active Substance: WATER
     Indication: PARENTERAL NUTRITION
     Dosage: TPN WITH CLINOLEIC, BAXTER UNLICENSED SPECIALS
     Route: 065
  12. MAGNESIUM SULPHATE [Suspect]
     Active Substance: MAGNESIUM SULFATE
     Indication: PARENTERAL NUTRITION
     Dosage: TPN WITH CLINOLEIC, BAXTER UNLICENSED SPECIALS
     Route: 065
  13. IRON CHLORIDE [Suspect]
     Active Substance: FERRIC CHLORIDE
     Indication: PARENTERAL NUTRITION
     Dosage: TPN WITH CLINOLEIC
     Route: 065
  14. IRON CHLORIDE [Suspect]
     Active Substance: FERRIC CHLORIDE
     Dosage: TPN WITHOUT CLINOLEIC
     Route: 065
  15. COPPER SULPHATE [Suspect]
     Active Substance: CUPRIC SULFATE ANHYDROUS
     Dosage: TPN WITHOUT CLINOLEIC
     Route: 065
  16. SELENIUM [Suspect]
     Active Substance: SELENIUM
     Dosage: TPN WITHOUT CLINOLEIC, BAXTER UNLICENSED SPECIALS
     Route: 065
  17. WATER FOR INJECTION [Suspect]
     Active Substance: WATER
     Dosage: TPN WITHOUT CLINOLEIC
     Route: 065
  18. WATER FOR TPN FORMULATIONS [Suspect]
     Active Substance: WATER
     Dosage: TPN WITHOUT CLINOLEIC, BAXTER UNLICENSED SPECIALS
     Route: 065
  19. CERNEVIT [Suspect]
     Active Substance: VITAMINS
     Indication: PARENTERAL NUTRITION
     Dosage: TPN WITH CLINOLEIC
     Route: 065
  20. SODIUM CHLORIDE. [Suspect]
     Active Substance: SODIUM CHLORIDE
     Indication: PARENTERAL NUTRITION
     Dosage: TPN WITH CLINOLEIC, BAXTER UNLICENSED SPECIALS
     Route: 065
  21. SODIUM CHLORIDE. [Suspect]
     Active Substance: SODIUM CHLORIDE
     Dosage: TPN WITHOUT CLINOLEIC, BAXTER UNLICENSED SPECIALS
     Route: 065
  22. COPPER SULPHATE [Suspect]
     Active Substance: CUPRIC SULFATE ANHYDROUS
     Indication: PARENTERAL NUTRITION
     Dosage: TPN WITH CLINOLEIC
     Route: 065
  23. SELENIUM [Suspect]
     Active Substance: SELENIUM
     Indication: PARENTERAL NUTRITION
     Dosage: TPN WITH CLINOLEIC, BAXTER UNLICENSED SPECIALS
     Route: 065
  24. SYNTHAMIN [Suspect]
     Active Substance: AMINO ACIDS
     Indication: PARENTERAL NUTRITION
     Dosage: TPN WITH CLINOLEIC
     Route: 065
  25. SYNTHAMIN [Suspect]
     Active Substance: AMINO ACIDS
     Dosage: TPN WITHOUT CLINOLEIC
     Route: 065
  26. CLINOLEIC 20% (BAG) [Suspect]
     Active Substance: OLIVE OIL\SOYBEAN OIL
     Indication: PARENTERAL NUTRITION
     Route: 065
  27. WATER FOR INJECTION [Suspect]
     Active Substance: WATER
     Indication: PARENTERAL NUTRITION
     Dosage: TPN WITH CLINOLEIC
     Route: 065
  28. CERNEVIT [Suspect]
     Active Substance: VITAMINS
     Dosage: TPN WITHOUT CLINOLEIC
     Route: 065
  29. ZINC SULFATE [Suspect]
     Active Substance: ZINC SULFATE\ZINC SULFATE ANHYDROUS
     Dosage: TPN WITHOUT CLINOLEIC
     Route: 065
  30. TPN [Suspect]
     Active Substance: AMINO ACIDS\DEXTROSE\ELECTROLYTES NOS\SOYBEAN OIL
     Indication: PARENTERAL NUTRITION
     Dosage: UNSPECIFIED FORMULATION
     Route: 065
     Dates: start: 2012

REACTIONS (1)
  - Device related infection [Unknown]

NARRATIVE: CASE EVENT DATE: 20180321
